FAERS Safety Report 14890872 (Version 1)
Quarter: 2018Q2

REPORT INFORMATION
  Report Type: Spontaneous
  Country: US (occurrence: US)
  Receive Date: 20180514
  Receipt Date: 20180514
  Transmission Date: 20180711
  Serious: No
  Sender: FDA-Public Use
  Company Number: US-UNITED THERAPEUTICS-UNT-2018-001982

PATIENT
  Sex: Female
  Weight: 111.57 kg

DRUGS (3)
  1. ORENITRAM [Suspect]
     Active Substance: TREPROSTINIL
     Indication: PULMONARY ARTERIAL HYPERTENSION
     Dosage: 2.5 MG, TID
     Route: 048
     Dates: start: 20170517
  2. ORENITRAM [Suspect]
     Active Substance: TREPROSTINIL
     Dosage: UNK
     Route: 048
  3. SILDENAFIL CITRATE. [Concomitant]
     Active Substance: SILDENAFIL CITRATE
     Indication: PRODUCT USED FOR UNKNOWN INDICATION
     Route: 065

REACTIONS (10)
  - Gastroenteritis viral [Unknown]
  - Malaise [Unknown]
  - Pyrexia [Unknown]
  - Dehydration [Unknown]
  - Productive cough [Unknown]
  - Weight decreased [Unknown]
  - Vomiting [Unknown]
  - Headache [Unknown]
  - Pain in jaw [Unknown]
  - Dyspnoea [Unknown]
